FAERS Safety Report 20804333 (Version 2)
Quarter: 2022Q2

REPORT INFORMATION
  Report Type: Spontaneous
  Country: US (occurrence: US)
  Receive Date: 20220509
  Receipt Date: 20220607
  Transmission Date: 20220721
  Serious: No
  Sender: FDA-Public Use
  Company Number: US-BRISTOL-MYERS SQUIBB COMPANY-2022-030193

PATIENT
  Age: 82 Year
  Sex: Female

DRUGS (1)
  1. REVLIMID [Suspect]
     Active Substance: LENALIDOMIDE
     Indication: Product used for unknown indication
     Dosage: 10MG DAILY FOR TWO WEEKS ON, THEN ONE WEEK OFF
     Route: 048
     Dates: start: 202204

REACTIONS (4)
  - Anaemia [Unknown]
  - Thyroid disorder [Unknown]
  - Dizziness [Unknown]
  - Dizziness [Unknown]

NARRATIVE: CASE EVENT DATE: 20220328
